FAERS Safety Report 16010959 (Version 1)
Quarter: 2019Q1

REPORT INFORMATION
  Report Type: Spontaneous
  Country: US (occurrence: US)
  Receive Date: 20190227
  Receipt Date: 20190227
  Transmission Date: 20190418
  Serious: No
  Sender: FDA-Public Use
  Company Number: US-ASTRAZENECA-2019SE18827

PATIENT
  Sex: Male
  Weight: 74.8 kg

DRUGS (1)
  1. SYMBICORT [Suspect]
     Active Substance: BUDESONIDE\FORMOTEROL FUMARATE DIHYDRATE
     Dosage: TAKING THE SYMBICORT INHALER, 160/4.5, 2 PUFFS IN THE MORNING AND 2 PUFFS IN THE EVENING
     Route: 055

REACTIONS (17)
  - Nasal congestion [Unknown]
  - Swelling [Unknown]
  - Asthenia [Unknown]
  - Aspiration [Unknown]
  - Gastrointestinal disorder [Unknown]
  - Vomiting [Unknown]
  - Product use in unapproved indication [Unknown]
  - Back pain [Unknown]
  - Intentional product misuse [Unknown]
  - Nasopharyngitis [Unknown]
  - Secretion discharge [Unknown]
  - Chills [Unknown]
  - Cough [Unknown]
  - Anxiety [Unknown]
  - Drug ineffective [Unknown]
  - Inflammation [Unknown]
  - Off label use [Unknown]
